FAERS Safety Report 5593061-8 (Version None)
Quarter: 2008Q1

REPORT INFORMATION
  Report Type: 
  Country: None (occurrence: None)
  Receive Date: 20080116
  Receipt Date: 20080111
  Transmission Date: 20080703
  Serious: Yes (Other)
  Sender: FDA-Public Use
  Company Number: US-JNJFOC-20080102887

PATIENT
  Age: 31 Year
  Sex: Female

DRUGS (6)
  1. TOPAMAX [Suspect]
     Indication: EPILEPSY
  2. TOPAMAX [Suspect]
     Indication: MIGRAINE PROPHYLAXIS
  3. TOPAMAX [Suspect]
     Indication: HEADACHE
  4. TRILEPTAL [Suspect]
     Indication: EPILEPSY
  5. TRILEPTAL [Suspect]
     Indication: MIGRAINE PROPHYLAXIS
  6. TRILEPTAL [Suspect]
     Indication: HEADACHE

REACTIONS (3)
  - DRUG EXPOSURE DURING PREGNANCY [None]
  - HYPERTENSION [None]
  - UTERINE INFECTION [None]
